FAERS Safety Report 4319529-X (Version None)
Quarter: 2004Q1

REPORT INFORMATION
  Report Type: 
  Country: None (occurrence: None)
  Receive Date: 20040316
  Receipt Date: 20040302
  Transmission Date: 20041129
  Serious: Yes (Death)
  Sender: FDA-Public Use
  Company Number: S04-USA-01058-01

PATIENT
  Age: 35 Year
  Sex: Male

DRUGS (9)
  1. CELEXA [Suspect]
     Dosage: 40 MG QD PO
     Route: 048
     Dates: end: 20040201
  2. CELEXA [Suspect]
  3. CLOZARIL [Suspect]
     Dosage: 600 MG QD
     Dates: end: 20040201
  4. CLOZARIL [Suspect]
     Dates: start: 19940101
  5. ATENOLOL [Concomitant]
  6. PREVACID [Concomitant]
  7. CARDURA [Concomitant]
  8. REGLAN [Concomitant]
  9. ZOCOR [Concomitant]

REACTIONS (2)
  - DRUG INTERACTION [None]
  - DRUG LEVEL INCREASED [None]
